FAERS Safety Report 7302320-X (Version None)
Quarter: 2011Q1

REPORT INFORMATION
  Report Type: 
  Country: None (occurrence: None)
  Receive Date: 20110218
  Receipt Date: 20110209
  Transmission Date: 20110831
  Serious: Yes (Other)
  Sender: FDA-Public Use
  Company Number: US-PFIZER INC-2011029671

PATIENT
  Sex: Female
  Weight: 72.562 kg

DRUGS (1)
  1. PRISTIQ [Suspect]
     Indication: OBSESSIVE-COMPULSIVE DISORDER
     Dosage: 50 MG, 2X/DAY
     Route: 048

REACTIONS (4)
  - GASTRIC BYPASS [None]
  - PRODUCT SOLUBILITY ABNORMAL [None]
  - MEDICATION RESIDUE [None]
  - WRONG TECHNIQUE IN DRUG USAGE PROCESS [None]
